FAERS Safety Report 18637642 (Version 1)
Quarter: 2020Q4

REPORT INFORMATION
  Report Type: Spontaneous
  Country: US (occurrence: US)
  Receive Date: 20201218
  Receipt Date: 20201218
  Transmission Date: 20210114
  Serious: No
  Sender: FDA-Public Use
  Company Number: US-GENUS_LIFESCIENCES-USA-POI0580202000218

PATIENT
  Age: 58 Year
  Sex: Female

DRUGS (5)
  1. OXYCODONE HCL ORAL SOLUTION [Suspect]
     Active Substance: OXYCODONE HYDROCHLORIDE
     Indication: PAIN
     Route: 048
     Dates: start: 2005
  2. OXYCODONE HCL CAPSULES [Suspect]
     Active Substance: OXYCODONE HYDROCHLORIDE
     Indication: PAIN
     Dates: start: 2005
  3. XANAX [Suspect]
     Active Substance: ALPRAZOLAM
     Indication: PRODUCT USED FOR UNKNOWN INDICATION
     Dates: start: 2005
  4. OXYCODONE HCL ORAL SOLUTION [Suspect]
     Active Substance: OXYCODONE HYDROCHLORIDE
     Indication: BACK INJURY
  5. OXYCONTIN [Suspect]
     Active Substance: OXYCODONE HYDROCHLORIDE
     Indication: PAIN
     Dates: start: 2005

REACTIONS (2)
  - Intentional product misuse [Recovered/Resolved]
  - Drug abuse [Recovered/Resolved]

NARRATIVE: CASE EVENT DATE: 2005
